FAERS Safety Report 15030463 (Version 1)
Quarter: 2018Q2

REPORT INFORMATION
  Report Type: Spontaneous
  Country: ES (occurrence: ES)
  Receive Date: 20180619
  Receipt Date: 20180619
  Transmission Date: 20180711
  Serious: Yes (Death, Hospitalization, Other)
  Sender: FDA-Public Use
  Company Number: ES-BAYER-2018-113074

PATIENT
  Age: 67 Year
  Sex: Male

DRUGS (3)
  1. EVEROLIMUS. [Suspect]
     Active Substance: EVEROLIMUS
     Dosage: UNK UNK, CONT
  2. ACETYLSALICYLIC ACID({=100 MG) [Suspect]
     Active Substance: ASPIRIN
     Indication: ACUTE MYOCARDIAL INFARCTION
  3. PRASUGREL. [Suspect]
     Active Substance: PRASUGREL
     Indication: ACUTE MYOCARDIAL INFARCTION
     Dosage: UNK

REACTIONS (5)
  - Vascular stent thrombosis [Unknown]
  - Septic shock [Fatal]
  - Drug effect incomplete [Unknown]
  - Vascular stent stenosis [Unknown]
  - Acute myocardial infarction [Unknown]
